FAERS Safety Report 10983894 (Version 3)
Quarter: 2015Q3

REPORT INFORMATION
  Report Type: Report from Study
  Country: DE (occurrence: DE)
  Receive Date: 20150403
  Receipt Date: 20150708
  Transmission Date: 20151125
  Serious: Yes (Hospitalization)
  Sender: FDA-Public Use
  Company Number: DE-PFIZER INC-2015106854

PATIENT
  Age: 66 Year
  Sex: Male
  Weight: 65 kg

DRUGS (5)
  1. CYTARABINE. [Suspect]
     Active Substance: CYTARABINE
     Dosage: 3700.0 MG, UNK
     Dates: start: 20150125
  2. TEMSIROLIMUS [Suspect]
     Active Substance: TEMSIROLIMUS
     Dosage: 25 MG PER INFUSION, CYCLIC (EACH CYCLE ON DAY 1 AND DAY 8)
     Dates: start: 20150127
  3. CISPLATIN. [Suspect]
     Active Substance: CISPLATIN
     Dosage: 185 MG, UNK
     Dates: start: 20150124
  4. RITUXIMAB [Suspect]
     Active Substance: RITUXIMAB
     Dosage: 693.75 UNK, UNK
     Dates: start: 20150123
  5. DEXAMETHASONE. [Suspect]
     Active Substance: DEXAMETHASONE
     Dosage: 40.0 MG, UNK
     Dates: start: 20150124

REACTIONS (1)
  - Epistaxis [Recovered/Resolved]

NARRATIVE: CASE EVENT DATE: 20150323
